FAERS Safety Report 23761534 (Version 1)
Quarter: 2024Q2

REPORT INFORMATION
  Report Type: Spontaneous
  Country: US (occurrence: None)
  Receive Date: 20240418
  Receipt Date: 20240418
  Transmission Date: 20240716
  Serious: Yes (unspecified)
  Sender: FDA-Public Use
  Company Number: None

PATIENT
  Age: 68 Year
  Sex: Male

DRUGS (1)
  1. DALFAMPRIDINE [Suspect]
     Active Substance: DALFAMPRIDINE
     Indication: Multiple sclerosis
     Dosage: 10 MG TWICE A DAY ?
     Route: 048
     Dates: start: 20240209, end: 20240417

REACTIONS (4)
  - Dizziness [None]
  - Balance disorder [None]
  - Vertigo [None]
  - Diplopia [None]

NARRATIVE: CASE EVENT DATE: 20240418
